FAERS Safety Report 12293681 (Version 4)
Quarter: 2016Q3

REPORT INFORMATION
  Report Type: Spontaneous
  Country: US (occurrence: US)
  Receive Date: 20160421
  Receipt Date: 20160830
  Transmission Date: 20161109
  Serious: Yes (Hospitalization, Other)
  Sender: FDA-Public Use
  Company Number: US-TEVA-653078USA

PATIENT
  Age: 73 Year
  Sex: Male

DRUGS (21)
  1. MUCINEX [Concomitant]
     Active Substance: GUAIFENESIN
     Dosage: 600 MILLIGRAM DAILY; AM
  2. DIOVAN HCT [Concomitant]
     Active Substance: HYDROCHLOROTHIAZIDE\VALSARTAN
     Dosage: 80 / 12.5 MG
     Route: 048
  3. XOPENEX [Suspect]
     Active Substance: LEVALBUTEROL HYDROCHLORIDE
     Indication: ASTHMA
     Route: 055
     Dates: start: 2006, end: 2013
  4. NASACORT AQ [Concomitant]
     Active Substance: TRIAMCINOLONE ACETONIDE
     Dosage: 33 GRAM DAILY; AM
     Route: 045
     Dates: start: 20051222
  5. NASACORT AQ [Concomitant]
     Active Substance: TRIAMCINOLONE ACETONIDE
     Dosage: 1320 MICROGRAM DAILY;
     Dates: start: 20060629
  6. ZITHROMAX [Concomitant]
     Active Substance: AZITHROMYCIN DIHYDRATE
  7. CLARINEX [Concomitant]
     Active Substance: DESLORATADINE
  8. LEVALBUTEROL. [Suspect]
     Active Substance: LEVALBUTEROL
     Indication: ASTHMA
     Dosage: 1.25MG / 3 ML/MAX 6 PER DAY
     Dates: start: 201603, end: 201603
  9. CARDIZEM [Concomitant]
     Active Substance: DILTIAZEM HYDROCHLORIDE
     Route: 048
  10. XARELTO [Concomitant]
     Active Substance: RIVAROXABAN
     Dosage: EVERYDAY PM
     Route: 048
  11. XOPENEX [Suspect]
     Active Substance: LEVALBUTEROL HYDROCHLORIDE
     Route: 055
     Dates: start: 201603
  12. FLOVENT HFA [Concomitant]
     Active Substance: FLUTICASONE PROPIONATE
     Dosage: ONE PUFF TWICE A DAY
     Dates: start: 20051222
  13. FLOVENT HFA [Concomitant]
     Active Substance: FLUTICASONE PROPIONATE
     Dosage: 1320 MICROGRAM DAILY;
     Dates: start: 20060629
  14. NEXIUM [Concomitant]
     Active Substance: ESOMEPRAZOLE MAGNESIUM
  15. SPIRIVA RESPIMAT [Concomitant]
     Active Substance: TIOTROPIUM BROMIDE
     Route: 055
  16. SINGULAIR [Concomitant]
     Active Substance: MONTELUKAST SODIUM
     Dosage: EVERY DAY  PM
     Route: 048
  17. METFORMIN [Concomitant]
     Active Substance: METFORMIN HYDROCHLORIDE
     Indication: DIABETES MELLITUS
     Route: 048
  18. LANTUS [Concomitant]
     Active Substance: INSULIN GLARGINE
     Indication: DIABETES MELLITUS
     Dosage: AT BEDTIME
  19. CEFTIN [Concomitant]
     Active Substance: CEFUROXIME AXETIL
     Route: 048
  20. XOPENEX HFA [Concomitant]
     Active Substance: LEVALBUTEROL TARTRATE
     Indication: DYSPNOEA
     Dosage: ONE PUFF FOR EVERY 4 HOURS AS PER NEEDED
     Route: 055
  21. LIPITOR [Concomitant]
     Active Substance: ATORVASTATIN CALCIUM
     Dosage: 40 MILLIGRAM DAILY; PM

REACTIONS (15)
  - Diabetes mellitus [Not Recovered/Not Resolved]
  - Atrial fibrillation [Recovered/Resolved]
  - Left ventricular hypertrophy [Unknown]
  - Asthma [Recovered/Resolved]
  - Dyspnoea [Recovered/Resolved]
  - Pneumonia [Unknown]
  - Glycosylated haemoglobin increased [Recovered/Resolved]
  - Oxygen saturation decreased [Recovered/Resolved]
  - Dysgeusia [Recovered/Resolved]
  - Respiratory tract irritation [Recovered/Resolved]
  - Vocal cord disorder [Unknown]
  - Lung infiltration [Unknown]
  - Leukocytosis [Not Recovered/Not Resolved]
  - Blood glucose increased [Recovered/Resolved]
  - Cardiac failure congestive [Recovering/Resolving]

NARRATIVE: CASE EVENT DATE: 2016
